FAERS Safety Report 8856185 (Version 1)
Quarter: 2012Q4

REPORT INFORMATION
  Report Type: 
  Country: US (occurrence: US)
  Receive Date: 20121023
  Receipt Date: 20121023
  Transmission Date: 20130627
  Serious: No
  Sender: FDA-Public Use
  Company Number: US-AMGEN-USASP2012056688

PATIENT
  Age: 82 Year
  Sex: Male

DRUGS (4)
  1. ENBREL [Suspect]
     Indication: PSORIATIC ARTHROPATHY
     Dosage: 50 mg, qwk
     Route: 058
     Dates: start: 200409
  2. METHOCARBAMOL [Concomitant]
     Dosage: UNK
  3. CARDIZEM                           /00489701/ [Concomitant]
     Dosage: UNK
  4. NAPROSYN /00256201/ [Concomitant]
     Dosage: UNK

REACTIONS (1)
  - Diverticulitis [Recovered/Resolved]
